FAERS Safety Report 10871345 (Version 1)
Quarter: 2015Q1

REPORT INFORMATION
  Report Type: Spontaneous
  Country: US (occurrence: US)
  Receive Date: 20150226
  Receipt Date: 20150226
  Transmission Date: 20150721
  Serious: Yes (Death, Other)
  Sender: FDA-Public Use
  Company Number: US-ELI_LILLY_AND_COMPANY-US201502008082

PATIENT
  Age: 47 Year
  Sex: Male

DRUGS (2)
  1. REOPRO [Concomitant]
     Active Substance: ABCIXIMAB
     Indication: ACUTE MYOCARDIAL INFARCTION
     Dosage: UNK
     Route: 065
     Dates: start: 201502
  2. EFFIENT [Suspect]
     Active Substance: PRASUGREL HYDROCHLORIDE
     Indication: ACUTE MYOCARDIAL INFARCTION
     Dosage: UNK
     Route: 065
     Dates: start: 201502

REACTIONS (1)
  - Myocardial infarction [Fatal]

NARRATIVE: CASE EVENT DATE: 201502
